FAERS Safety Report 5287591-6 (Version None)
Quarter: 2007Q1

REPORT INFORMATION
  Report Type: 
  Country: None (occurrence: None)
  Receive Date: 20070126
  Receipt Date: 20060504
  Transmission Date: 20070707
  Serious: No
  Sender: FDA-Public Use
  Company Number: 2006CT001125

PATIENT
  Age: 56 Year
  Sex: Female
  Weight: 63.5 kg

DRUGS (15)
  1. VENTAVIS [Suspect]
     Indication: PULMONARY HYPERTENSION
     Dosage: SEE IMAGE
     Route: 055
     Dates: start: 20050406, end: 20050501
  2. VENTAVIS [Suspect]
     Indication: PULMONARY HYPERTENSION
     Dosage: SEE IMAGE
     Route: 055
     Dates: start: 20050501, end: 20060404
  3. ULTRAM [Concomitant]
  4. TRACLEER [Concomitant]
  5. SILDENAFIL CITRATE [Concomitant]
  6. ACIPHEX [Concomitant]
  7. DIGOXIN [Concomitant]
  8. ZOLOFT [Concomitant]
  9. MINOCIN [Concomitant]
  10. AMBIEN [Concomitant]
  11. DOXAZOSIN MESYLATE [Concomitant]
  12. CARDIZEM [Concomitant]
  13. LASIX [Concomitant]
  14. ALDACTONE [Concomitant]
  15. PLAQUENIL [Concomitant]

REACTIONS (3)
  - BLOOD PRESSURE DECREASED [None]
  - DIARRHOEA [None]
  - FATIGUE [None]
